FAERS Safety Report 14367835 (Version 1)
Quarter: 2018Q1

REPORT INFORMATION
  Report Type: Report from Study
  Country: BE (occurrence: BE)
  Receive Date: 20180109
  Receipt Date: 20180109
  Transmission Date: 20180509
  Serious: Yes (Other)
  Sender: FDA-Public Use
  Company Number: BE-PFIZER INC-2018002522

PATIENT
  Age: 31 Year
  Sex: Male

DRUGS (8)
  1. METHOTREXATE SODIUM. [Suspect]
     Active Substance: METHOTREXATE SODIUM
     Indication: PROPHYLAXIS
     Dosage: 800 UG, WEEKLY, 7 TIMES
     Route: 050
  2. DOXORUBICIN [Suspect]
     Active Substance: DOXORUBICIN
     Indication: OCULAR LYMPHOMA
     Dosage: AS A PART OF CHOP REGIMEN
     Route: 042
  3. METHOTREXATE SODIUM. [Suspect]
     Active Substance: METHOTREXATE SODIUM
     Dosage: UNK
     Route: 042
  4. PREDNISONE. [Suspect]
     Active Substance: PREDNISONE
     Indication: OCULAR LYMPHOMA
     Dosage: AS A PART OF CHOP REGIMEN
     Route: 042
  5. VINCRISTINE [Suspect]
     Active Substance: VINCRISTINE
     Indication: OCULAR LYMPHOMA
     Dosage: AS A PART OF CHOP REGIMEN
     Route: 042
  6. CYCLOPHOSPHAMIDE. [Suspect]
     Active Substance: CYCLOPHOSPHAMIDE
     Indication: OCULAR LYMPHOMA
     Dosage: AS A PART OF CHOP REGIMEN
     Route: 042
  7. LEUCOVORIN CALCIUM. [Suspect]
     Active Substance: LEUCOVORIN CALCIUM
     Indication: OCULAR LYMPHOMA
     Route: 042
  8. METHOTREXATE SODIUM. [Suspect]
     Active Substance: METHOTREXATE SODIUM
     Indication: OCULAR LYMPHOMA
     Route: 037

REACTIONS (1)
  - Keratitis [Unknown]
